FAERS Safety Report 23059016 (Version 1)
Quarter: 2023Q4

REPORT INFORMATION
  Report Type: Spontaneous
  Country: US (occurrence: None)
  Receive Date: 20231012
  Receipt Date: 20231012
  Transmission Date: 20240109
  Serious: Yes (Other)
  Sender: FDA-Public Use
  Company Number: None

PATIENT
  Sex: 0

DRUGS (1)
  1. MINOXIDIL [Suspect]
     Active Substance: MINOXIDIL

REACTIONS (4)
  - Sinusitis [None]
  - Hair growth abnormal [None]
  - Eczema [None]
  - Product use complaint [None]
